FAERS Safety Report 7693276-9 (Version None)
Quarter: 2011Q3

REPORT INFORMATION
  Report Type: 
  Country: None (occurrence: None)
  Receive Date: 20110819
  Receipt Date: 20110808
  Transmission Date: 20111222
  Serious: Yes (Other)
  Sender: FDA-Public Use
  Company Number: PHHY2011VE72539

PATIENT
  Sex: Male

DRUGS (8)
  1. ALLOPURINOL [Concomitant]
     Dosage: UNK UKN, BID
     Dates: start: 20090101
  2. LOPRESSOR [Suspect]
     Indication: HYPERTENSION
     Dosage: 5 MG, BID
     Route: 048
  3. GLUCOPHAGE [Concomitant]
     Dosage: 850 MG, BID
     Dates: start: 20060101
  4. GEMFIBROZIL [Concomitant]
     Dosage: 600 MG, UNK
     Route: 048
     Dates: start: 20060101
  5. ENALAPRIL MALEATE [Concomitant]
     Indication: HYPERTENSION
     Dosage: 10 MG, BID
     Route: 048
  6. OMEPRAZOLE [Concomitant]
     Indication: HYPERCHLORHYDRIA
     Dosage: 20 MG, UNK
     Route: 048
  7. SALTRAN [Concomitant]
     Dosage: UNK UKN, UNK
  8. ASPIRIN [Concomitant]
     Dosage: 100 MG, UNK
     Route: 048
     Dates: start: 20060101

REACTIONS (3)
  - MUSCLE INJURY [None]
  - PAIN IN EXTREMITY [None]
  - FALL [None]
